FAERS Safety Report 8488876-2 (Version None)
Quarter: 2012Q3

REPORT INFORMATION
  Report Type: 
  Country: None (occurrence: None)
  Receive Date: 20120705
  Receipt Date: 20120621
  Transmission Date: 20120928
  Serious: Yes (Other)
  Sender: FDA-Public Use
  Company Number: US-ENDO PHARMACEUTICALS INC.-OPCR20121466

PATIENT
  Sex: Male

DRUGS (1)
  1. OPANA ER [Suspect]
     Indication: SPINAL PAIN
     Route: 065
     Dates: start: 20120301

REACTIONS (5)
  - REGURGITATION [None]
  - COUGH [None]
  - DYSPHAGIA [None]
  - NECK INJURY [None]
  - FOREIGN BODY [None]
